FAERS Safety Report 19513757 (Version 4)
Quarter: 2024Q2

REPORT INFORMATION
  Report Type: Spontaneous
  Country: US (occurrence: US)
  Receive Date: 20210709
  Receipt Date: 20240628
  Transmission Date: 20240715
  Serious: Yes (Death)
  Sender: FDA-Public Use
  Company Number: US-AVEO ONCOLOGY-2021-AVEO-US003420

PATIENT

DRUGS (4)
  1. FOTIVDA [Suspect]
     Active Substance: TIVOZANIB HYDROCHLORIDE
     Indication: Renal cell carcinoma
     Dosage: 0.89 MG, DAILY FOR 21 DAYS, THEN 7 DAYS OFF. REPEAT
     Dates: start: 20210525, end: 20210628
  2. LEVOTHYROXINE [Concomitant]
     Active Substance: LEVOTHYROXINE\LEVOTHYROXINE SODIUM
  3. SIMVASTATIN [Concomitant]
     Active Substance: SIMVASTATIN
  4. OXYCODONE [Concomitant]
     Active Substance: OXYCODONE\OXYCODONE HYDROCHLORIDE

REACTIONS (7)
  - Disease progression [Fatal]
  - Malaise [Recovered/Resolved]
  - Dysphonia [Recovered/Resolved]
  - Dry skin [Recovered/Resolved]
  - Anaemia [Recovered/Resolved]
  - Gastrointestinal tract irritation [Recovered/Resolved]
  - Haemoglobin decreased [Unknown]

NARRATIVE: CASE EVENT DATE: 20211125
